FAERS Safety Report 10025402 (Version 1)
Quarter: 2014Q1

REPORT INFORMATION
  Report Type: Spontaneous
  Country: US (occurrence: None)
  Receive Date: 20140304
  Receipt Date: 20140304
  Transmission Date: 20141002
  Serious: Yes (Other)
  Sender: FDA-Public Use
  Company Number: RB-4401-2012

PATIENT
  Age: 26 Year
  Sex: Male

DRUGS (2)
  1. SUBOXONE [Suspect]
     Indication: DRUG DEPENDENCE
     Dosage: (4 MG QID ORAL)?
     Route: 048
     Dates: start: 20120824, end: 20120826
  2. TRAMADOL [Concomitant]

REACTIONS (4)
  - Pharyngeal oedema [None]
  - Panic attack [None]
  - Local swelling [None]
  - Anxiety [None]
